FAERS Safety Report 18963401 (Version 1)
Quarter: 2021Q1

REPORT INFORMATION
  Report Type: Spontaneous
  Country: US (occurrence: US)
  Receive Date: 20210303
  Receipt Date: 20210303
  Transmission Date: 20210420
  Serious: Yes (Other)
  Sender: FDA-Public Use
  Company Number: US-KALA PHARAMACEUTICALS-2021KLA00024

PATIENT
  Sex: Female

DRUGS (3)
  1. INVELTYS [Suspect]
     Active Substance: LOTEPREDNOL ETABONATE
     Indication: CATARACT OPERATION
     Dosage: 2 DROPS DAILY
     Route: 047
  2. INVELTYS [Suspect]
     Active Substance: LOTEPREDNOL ETABONATE
     Dosage: UNK
  3. INVELTYS [Suspect]
     Active Substance: LOTEPREDNOL ETABONATE
     Dosage: 1 DROP DAILY
     Route: 047

REACTIONS (7)
  - Glaucoma drainage device placement [Not Recovered/Not Resolved]
  - Off label use [Not Recovered/Not Resolved]
  - Product use issue [Not Recovered/Not Resolved]
  - Photophobia [Not Recovered/Not Resolved]
  - Glaucoma [Not Recovered/Not Resolved]
  - Eye pain [Not Recovered/Not Resolved]
  - Blindness [Not Recovered/Not Resolved]
